FAERS Safety Report 21453402 (Version 1)
Quarter: 2022Q4

REPORT INFORMATION
  Report Type: Spontaneous
  Country: US (occurrence: US)
  Receive Date: 20221013
  Receipt Date: 20221013
  Transmission Date: 20230113
  Serious: No
  Sender: FDA-Public Use
  Company Number: USA--2022-US-000560

PATIENT
  Age: 87 Year
  Sex: Female

DRUGS (5)
  1. DORZOLAMIDE HYDROCHLORIDE\TIMOLOL MALEATE [Suspect]
     Active Substance: DORZOLAMIDE HYDROCHLORIDE\TIMOLOL MALEATE
     Dosage: 1 DROP OU BID
     Dates: start: 2020
  2. NEBIVOLOL [Suspect]
     Active Substance: NEBIVOLOL
     Dosage: 1 TABLET DAILY
     Route: 048
     Dates: start: 2022
  3. Amalodapine [Concomitant]
     Dosage: 2 TABLETS TWICE DAILY
  4. LISINOPRIL [Concomitant]
     Active Substance: LISINOPRIL
     Dosage: 1 TABLET DAILY
  5. LATANOPROST [Concomitant]
     Active Substance: LATANOPROST
     Dosage: 1 DROP EACH EYE @ HS

REACTIONS (4)
  - Dizziness [Not Recovered/Not Resolved]
  - Vision blurred [Not Recovered/Not Resolved]
  - Visual impairment [Not Recovered/Not Resolved]
  - Condition aggravated [Not Recovered/Not Resolved]

NARRATIVE: CASE EVENT DATE: 20200906
